FAERS Safety Report 10409656 (Version 1)
Quarter: 2014Q2

REPORT INFORMATION
  Report Type: Spontaneous
  Country: US (occurrence: None)
  Receive Date: 20140604
  Receipt Date: 20140604
  Transmission Date: 20141212
  Serious: No
  Sender: FDA-Public Use
  Company Number: 163-POMAL-14051035

PATIENT
  Age: 65 Year
  Sex: Female
  Weight: 55.3 kg

DRUGS (1)
  1. POMALYST (POMALIDOMIDE) (2 MILLIGRAM, CAPSULES) [Suspect]
     Indication: PLASMA CELL MYELOMA
     Dosage: 2 MG, 21 IN 21 D
     Route: 048
     Dates: start: 201309

REACTIONS (4)
  - White blood cell count decreased [None]
  - Dry mouth [None]
  - Red blood cell count decreased [None]
  - Hyperkalaemia [None]
